FAERS Safety Report 23217238 (Version 2)
Quarter: 2024Q2

REPORT INFORMATION
  Report Type: Report from Study
  Country: US (occurrence: US)
  Receive Date: 20231122
  Receipt Date: 20240521
  Transmission Date: 20240716
  Serious: Yes (Hospitalization, Other)
  Sender: FDA-Public Use
  Company Number: US-ALXN-A202313379AA

PATIENT
  Sex: Female
  Weight: 87.3 kg

DRUGS (18)
  1. ULTOMIRIS [Suspect]
     Active Substance: RAVULIZUMAB-CWVZ
     Indication: Myasthenia gravis
     Dosage: 2700 MILLIGRAM
     Route: 042
     Dates: start: 20230310
  2. ULTOMIRIS [Suspect]
     Active Substance: RAVULIZUMAB-CWVZ
     Dosage: 3300 MILLIGRAM, EVERY 8 WEEKS
     Route: 042
  3. CIMZIA [Concomitant]
     Active Substance: CERTOLIZUMAB PEGOL
     Indication: Product used for unknown indication
     Dosage: UNK, EVERY 14 DAYS
     Route: 065
     Dates: start: 20230731
  4. CIMZIA [Concomitant]
     Active Substance: CERTOLIZUMAB PEGOL
     Dosage: UNK, EVERY 28 DAYS
     Route: 065
  5. DELTASONE [Concomitant]
     Active Substance: PREDNISONE
     Indication: Product used for unknown indication
     Dosage: 5 MILLIGRAM, QOD
     Route: 065
     Dates: start: 20230926, end: 20230930
  6. DELTASONE [Concomitant]
     Active Substance: PREDNISONE
     Dosage: 2 DOSAGE FORM, BID, IN THE MORNING
     Route: 048
  7. MESTINON [Concomitant]
     Active Substance: PYRIDOSTIGMINE BROMIDE
     Indication: Product used for unknown indication
     Dosage: 1 DOSAGE FORM, TID
     Route: 048
     Dates: start: 20230911, end: 20230930
  8. Immunoglobulin [Concomitant]
     Indication: Product used for unknown indication
     Dosage: UNK, EVERY 4 WEEKS
     Route: 042
  9. PLAQUENIL [Concomitant]
     Active Substance: HYDROXYCHLOROQUINE SULFATE
     Indication: Product used for unknown indication
     Dosage: UNK
     Route: 065
  10. HUMIRA [Concomitant]
     Active Substance: ADALIMUMAB
     Indication: Product used for unknown indication
     Dosage: UNK, EVERY 14 DAYS
     Route: 058
     Dates: start: 20230606
  11. GAMUNEX [Concomitant]
     Active Substance: HUMAN IMMUNOGLOBULIN G
     Indication: Product used for unknown indication
     Dosage: UNK
     Route: 065
     Dates: start: 20210111
  12. GLUCOPHAGE [Concomitant]
     Active Substance: METFORMIN HYDROCHLORIDE
     Indication: Product used for unknown indication
     Dosage: 1 DOSAGE FORM, BID, ONE IN THE MORNING AND ONE IN THE EVENING, TAKE WITH MEALS
     Route: 048
     Dates: start: 20221118
  13. RINVOQ [Concomitant]
     Active Substance: UPADACITINIB
     Indication: Product used for unknown indication
     Dosage: 1 DOSAGE FORM, IN THE MORNING
     Route: 048
     Dates: start: 20230719
  14. ACTEMRA [Concomitant]
     Active Substance: TOCILIZUMAB
     Indication: Product used for unknown indication
     Dosage: UNK, EVERY 7 DAYS
     Route: 058
     Dates: start: 20230727
  15. INSULIN NOS [Concomitant]
     Active Substance: INSULIN NOS
     Indication: Product used for unknown indication
     Dosage: UNK UNK, TID AC-BEFORE MEALS
     Route: 058
  16. PANTOPRAZOLE [Concomitant]
     Active Substance: PANTOPRAZOLE
     Indication: Product used for unknown indication
     Dosage: 40 MILLIGRAM, QAM AC-BEFORE MEALS
     Route: 048
  17. ACETAMINOPHEN [Concomitant]
     Active Substance: ACETAMINOPHEN
     Indication: Product used for unknown indication
     Dosage: UNK, PRN
     Route: 065
  18. ONDANSETRON [Concomitant]
     Active Substance: ONDANSETRON
     Indication: Product used for unknown indication
     Dosage: UNK UNK, PRN
     Route: 065

REACTIONS (5)
  - Myasthenia gravis [Recovering/Resolving]
  - Swelling [Unknown]
  - Depression [Unknown]
  - Anxiety [Unknown]
  - Pharyngitis streptococcal [Unknown]

NARRATIVE: CASE EVENT DATE: 20230519
